FAERS Safety Report 8611216-2 (Version None)
Quarter: 2012Q3

REPORT INFORMATION
  Report Type: 
  Country: None (occurrence: None)
  Receive Date: 20120803
  Receipt Date: 20120723
  Transmission Date: 20120928
  Serious: No
  Sender: FDA-Public Use
  Company Number: ACO_29573_2012

PATIENT
  Age: 56 Year
  Sex: Male
  Weight: 68 kg

DRUGS (20)
  1. INDERAL [Concomitant]
  2. METHYL B12 (MECOBALAMIN) [Concomitant]
  3. VITAMIN D [Concomitant]
  4. MULTIVITAMIN [Concomitant]
  5. CLONAZEPAM [Concomitant]
  6. DITROPAN [Concomitant]
  7. LIPPITOR (ATORVASTATIN CALCIUM) [Concomitant]
  8. RECLAST [Concomitant]
  9. AMANTADINE HCL [Concomitant]
  10. ASCORBIC ACID [Concomitant]
  11. DICLOFENAC SODIUM [Concomitant]
  12. PLAVIX [Concomitant]
  13. ASPIRIN [Concomitant]
  14. LOSARTAN POTASSIUM [Concomitant]
  15. FLOMAX [Concomitant]
  16. AMPYRA [Suspect]
     Indication: GAIT DISTURBANCE
     Dosage: 10 MG, BID, ORAL
     Route: 048
     Dates: start: 20110718, end: 20110911
  17. AMPYRA [Suspect]
     Indication: BALANCE DISORDER
     Dosage: 10 MG, BID, ORAL
     Route: 048
     Dates: start: 20110718, end: 20110911
  18. ALL OTHER THERAPEUTIC PRODUCTS [Concomitant]
  19. REBIF [Concomitant]
  20. FISH OIL [Concomitant]

REACTIONS (2)
  - BALANCE DISORDER [None]
  - MULTIPLE SCLEROSIS RELAPSE [None]
